FAERS Safety Report 4336834-1 (Version None)
Quarter: 2004Q2

REPORT INFORMATION
  Report Type: 
  Country: None (occurrence: None)
  Receive Date: 20040408
  Receipt Date: 20040324
  Transmission Date: 20050107
  Serious: Yes (Hospitalization)
  Sender: FDA-Public Use
  Company Number: 190177

PATIENT
  Sex: Female

DRUGS (3)
  1. AVONEX [Suspect]
     Indication: MULTIPLE SCLEROSIS
  2. NEURONTIN [Concomitant]
  3. BACLOFEN [Concomitant]

REACTIONS (3)
  - ARTHROPATHY [None]
  - KNEE OPERATION [None]
  - PERICARDIAL EFFUSION [None]
